FAERS Safety Report 19963543 (Version 1)
Quarter: 2021Q4

REPORT INFORMATION
  Report Type: Spontaneous
  Country: US (occurrence: US)
  Receive Date: 20211018
  Receipt Date: 20211018
  Transmission Date: 20220304
  Serious: Yes (Death, Hospitalization, Other)
  Sender: FDA-Public Use
  Company Number: US-AMGEN-USASP2021157197

PATIENT

DRUGS (1)
  1. FILGRASTIM [Suspect]
     Active Substance: FILGRASTIM
     Indication: Autologous haematopoietic stem cell transplant
     Dosage: 10 MICROGRAM/KILOGRAM, QD FOR 4 CONSECUTIVE DAYS
     Route: 065

REACTIONS (9)
  - Death [Fatal]
  - Neutropenic sepsis [Fatal]
  - Pneumonia [Fatal]
  - Febrile neutropenia [Unknown]
  - Engraft failure [Unknown]
  - Bacterial infection [Unknown]
  - Viral infection [Unknown]
  - Fungal infection [Unknown]
  - Injury [Unknown]
